FAERS Safety Report 9828561 (Version 2)
Quarter: 2014Q2

REPORT INFORMATION
  Report Type: Spontaneous
  Country: US (occurrence: US)
  Receive Date: 20140117
  Receipt Date: 20140530
  Transmission Date: 20141212
  Serious: No
  Sender: FDA-Public Use
  Company Number: US-009507513-1401USA007754

PATIENT
  Age: 85 Year
  Sex: Female
  Weight: 67.12 kg

DRUGS (1)
  1. MIRALAX [Suspect]
     Indication: COLONOSCOPY
     Dosage: 17 G, QD
     Route: 048
     Dates: start: 20140103, end: 20140106

REACTIONS (3)
  - Overdose [Unknown]
  - Off label use [Unknown]
  - Product solubility abnormal [Unknown]
